FAERS Safety Report 7743804-X (Version None)
Quarter: 2011Q3

REPORT INFORMATION
  Report Type: 
  Country: None (occurrence: None)
  Receive Date: 20110912
  Receipt Date: 20110902
  Transmission Date: 20111222
  Serious: Yes (Hospitalization)
  Sender: FDA-Public Use
  Company Number: US-GLAXOSMITHKLINE-A0889003A

PATIENT
  Age: 67 Year
  Sex: Female
  Weight: 88.6 kg

DRUGS (10)
  1. PROZAC [Concomitant]
  2. PREVACID [Concomitant]
  3. PREMARIN [Concomitant]
  4. GLYBURIDE [Concomitant]
  5. ADVAIR DISKUS 100/50 [Concomitant]
  6. ACEON [Concomitant]
  7. AVANDIA [Suspect]
     Indication: DIABETES MELLITUS
     Dosage: 8MG PER DAY
     Route: 048
     Dates: start: 19991126, end: 20070901
  8. INSULIN [Concomitant]
  9. AVALIDE [Concomitant]
  10. ZOCOR [Concomitant]

REACTIONS (3)
  - MYOCARDIAL INFARCTION [None]
  - CARDIAC FAILURE CONGESTIVE [None]
  - CORONARY ARTERY DISEASE [None]
